FAERS Safety Report 5352496-9 (Version None)
Quarter: 2007Q2

REPORT INFORMATION
  Report Type: 
  Country: None (occurrence: None)
  Receive Date: 20070611
  Receipt Date: 20070531
  Transmission Date: 20071010
  Serious: No
  Sender: FDA-Public Use
  Company Number: US-ASTRAZENECA-2006UW11093

PATIENT
  Age: 55 Year
  Sex: Male
  Weight: 97.7 kg

DRUGS (7)
  1. SEROQUEL [Suspect]
     Indication: ANXIETY
     Route: 048
     Dates: start: 20010101, end: 20060101
  2. SEROQUEL [Suspect]
     Indication: DEPRESSION
     Route: 048
     Dates: start: 20010101, end: 20060101
  3. SEROQUEL [Suspect]
     Indication: BIPOLAR DISORDER
     Route: 048
     Dates: start: 20010101, end: 20060101
  4. THORAZINE [Concomitant]
     Dates: start: 19740101
  5. LORAZEPAM [Concomitant]
  6. BUPROPION HYDROCHLORIDE [Concomitant]
  7. CITALOPRAM [Concomitant]
     Dates: start: 20020101

REACTIONS (1)
  - DIABETES MELLITUS [None]
